FAERS Safety Report 7807956-5 (Version None)
Quarter: 2011Q4

REPORT INFORMATION
  Report Type: 
  Country: None (occurrence: None)
  Receive Date: 20111011
  Receipt Date: 20111011
  Transmission Date: 20120403
  Serious: Yes (Hospitalization, Disabling)
  Sender: FDA-Public Use
  Company Number: None

PATIENT
  Sex: Male
  Weight: 155.12 kg

DRUGS (1)
  1. ACTOS [Suspect]
     Indication: TYPE 2 DIABETES MELLITUS
     Dosage: 30 MG
     Route: 048
     Dates: start: 20020130, end: 20020701

REACTIONS (6)
  - LYMPHOEDEMA [None]
  - WEIGHT INCREASED [None]
  - OPEN WOUND [None]
  - ABASIA [None]
  - ULCER [None]
  - OEDEMA PERIPHERAL [None]
